FAERS Safety Report 4603058-X (Version None)
Quarter: 2005Q1

REPORT INFORMATION
  Report Type: 
  Country: None (occurrence: None)
  Receive Date: 20050214
  Receipt Date: 20041207
  Transmission Date: 20050727
  Serious: No
  Sender: FDA-Public Use
  Company Number: USA041285534

PATIENT
  Age: 51 Year
  Sex: Male

DRUGS (3)
  1. CIALIS [Suspect]
     Dosage: 20 MG
  2. ZOLOFT [Concomitant]
  3. UNSPECIFIED BLOOD PRESSURE MEDICATION [Concomitant]

REACTIONS (1)
  - THERAPEUTIC RESPONSE DECREASED [None]
